FAERS Safety Report 12451756 (Version 2)
Quarter: 2016Q3

REPORT INFORMATION
  Report Type: Spontaneous
  Country: US (occurrence: US)
  Receive Date: 20160609
  Receipt Date: 20160715
  Transmission Date: 20161109
  Serious: Yes (Life-Threatening, Hospitalization, Other)
  Sender: FDA-Public Use
  Company Number: US-GLAXOSMITHKLINE-US2016GSK082166

PATIENT
  Age: 25 Year
  Sex: Female

DRUGS (6)
  1. CLONAZEPAM. [Suspect]
     Active Substance: CLONAZEPAM
     Indication: PRODUCT USED FOR UNKNOWN INDICATION
     Route: 048
  2. NICOTINE. [Suspect]
     Active Substance: NICOTINE
     Indication: PRODUCT USED FOR UNKNOWN INDICATION
  3. CITALOPRAM [Suspect]
     Active Substance: CITALOPRAM HYDROBROMIDE
     Indication: PRODUCT USED FOR UNKNOWN INDICATION
  4. TRAZODONE HYDROCHLORIDE. [Suspect]
     Active Substance: TRAZODONE HYDROCHLORIDE
     Indication: PRODUCT USED FOR UNKNOWN INDICATION
  5. GABAPENTIN. [Suspect]
     Active Substance: GABAPENTIN
     Indication: PRODUCT USED FOR UNKNOWN INDICATION
  6. HEROIN [Suspect]
     Active Substance: DIACETYLMORPHINE
     Indication: PRODUCT USED FOR UNKNOWN INDICATION
     Route: 048

REACTIONS (15)
  - Myocardial stunning [Recovering/Resolving]
  - Hypotension [Recovering/Resolving]
  - Cyanosis [Unknown]
  - Hypokinesia [Recovering/Resolving]
  - Intentional overdose [Recovering/Resolving]
  - Unresponsive to stimuli [Recovering/Resolving]
  - Respiratory failure [Recovering/Resolving]
  - Rhonchi [Recovering/Resolving]
  - Heart rate increased [Recovering/Resolving]
  - Hypoglycaemia [Recovering/Resolving]
  - Oxygen saturation decreased [Recovering/Resolving]
  - Body temperature decreased [Recovering/Resolving]
  - Ejection fraction decreased [Recovering/Resolving]
  - Overdose [Recovering/Resolving]
  - Drug screen positive [Recovering/Resolving]
